FAERS Safety Report 16607491 (Version 2)
Quarter: 2019Q3

REPORT INFORMATION
  Report Type: Spontaneous
  Country: NL (occurrence: NL)
  Receive Date: 20190722
  Receipt Date: 20190930
  Transmission Date: 20191004
  Serious: Yes (Life-Threatening, Hospitalization, Other)
  Sender: FDA-Public Use
  Company Number: NL-GLAXOSMITHKLINE-NL2018239738

PATIENT
  Age: 24 Year
  Sex: Female
  Weight: 87 kg

DRUGS (2)
  1. DICLOFENAC SODIUM. [Suspect]
     Active Substance: DICLOFENAC SODIUM
     Indication: EXOSTOSIS
     Dosage: 50 MG, UNK (EENMALIGE TOEDIENING)
     Route: 065
  2. IBUPROFEN. [Suspect]
     Active Substance: IBUPROFEN
     Indication: EXOSTOSIS
     Dosage: 1 DF, QD
     Route: 065
     Dates: start: 20180528, end: 20180529

REACTIONS (1)
  - Thrombotic thrombocytopenic purpura [Recovering/Resolving]

NARRATIVE: CASE EVENT DATE: 20180602
